FAERS Safety Report 4498069-1 (Version None)
Quarter: 2004Q3

REPORT INFORMATION
  Report Type: 
  Country: None (occurrence: None)
  Receive Date: 20040927
  Receipt Date: 20040726
  Transmission Date: 20050211
  Serious: No
  Sender: FDA-Public Use
  Company Number: USA040773640

PATIENT
  Age: 14 Year
  Sex: Male
  Weight: 34 kg

DRUGS (4)
  1. STRATTERA [Suspect]
     Indication: ATTENTION DEFICIT/HYPERACTIVITY DISORDER
     Dosage: 60 MG DAY
     Dates: start: 20040701
  2. CONCERTA [Concomitant]
  3. SINGULAIR (MONTELUKAST) [Concomitant]
  4. ADVAIR DISKUS 100/50 [Concomitant]

REACTIONS (3)
  - FATIGUE [None]
  - HEADACHE [None]
  - SOMNOLENCE [None]
